FAERS Safety Report 7750156-8 (Version None)
Quarter: 2011Q3

REPORT INFORMATION
  Report Type: 
  Country: None (occurrence: None)
  Receive Date: 20110912
  Receipt Date: 20110901
  Transmission Date: 20111222
  Serious: Yes (Life-Threatening, Hospitalization, Other)
  Sender: FDA-Public Use
  Company Number: 2010002279

PATIENT
  Age: 77 Year
  Sex: Male

DRUGS (15)
  1. TARCEVA [Suspect]
     Indication: LUNG NEOPLASM MALIGNANT
     Dosage: 150 MG, UID/QD, ORAL
     Route: 048
     Dates: start: 20100526, end: 20100527
  2. CEROCRAL (IFENPRODIL TARTRATE) [Concomitant]
  3. IRBESARTAN (IRBESARTAN) [Concomitant]
  4. NORVASC [Concomitant]
  5. TRICHLORMETHIAZIDE [Concomitant]
  6. ASPIRIN [Concomitant]
  7. GLUCOBAY [Concomitant]
  8. AMARYL [Concomitant]
  9. PRORENAL (LIMAPROST) [Concomitant]
  10. ARICEPT [Concomitant]
  11. ZOLPIDEM TARTRATE [Concomitant]
  12. ALDACTONE [Concomitant]
  13. GRANDAXIN (TOFISOPAM) [Concomitant]
  14. FERROMIA (FERRIC SODIUM CITRATE) [Concomitant]
  15. ACTOS [Concomitant]

REACTIONS (9)
  - CARDIAC TAMPONADE [None]
  - HAEMOGLOBIN DECREASED [None]
  - PERICARDIAL EFFUSION [None]
  - PLEURAL EFFUSION [None]
  - DIALYSIS [None]
  - URINARY RETENTION [None]
  - RED BLOOD CELL COUNT DECREASED [None]
  - VENTRICULAR TACHYCARDIA [None]
  - RENAL FAILURE ACUTE [None]
